FAERS Safety Report 18390387 (Version 1)
Quarter: 2020Q4

REPORT INFORMATION
  Report Type: Spontaneous
  Country: US (occurrence: US)
  Receive Date: 20201016
  Receipt Date: 20201016
  Transmission Date: 20210114
  Serious: Yes (Other)
  Sender: FDA-Public Use
  Company Number: US-ROCHE-2696262

PATIENT
  Sex: Male

DRUGS (2)
  1. DILTIAZEM ER [Concomitant]
     Active Substance: DILTIAZEM
  2. ESBRIET [Suspect]
     Active Substance: PIRFENIDONE
     Indication: IDIOPATHIC PULMONARY FIBROSIS
     Route: 048
     Dates: start: 20151017

REACTIONS (1)
  - Lung neoplasm malignant [Not Recovered/Not Resolved]
